FAERS Safety Report 20827828 (Version 2)
Quarter: 2022Q4

REPORT INFORMATION
  Report Type: Report from Study
  Country: US (occurrence: None)
  Receive Date: 20220513
  Receipt Date: 20221223
  Transmission Date: 20230112
  Serious: Yes (Hospitalization, Other)
  Sender: FDA-Public Use
  Company Number: US-ROCHE-3090854

PATIENT
  Age: 75 Year
  Sex: Male
  Weight: 76.6 kg

DRUGS (8)
  1. ATEZOLIZUMAB [Suspect]
     Active Substance: ATEZOLIZUMAB
     Indication: Gallbladder cancer metastatic
     Dosage: LAST ADMINISTERED DATE OF ATEZOLIZUMAB: 15/MAR/2022 (1680 MG) AND 07/APR/2022 (840 MG)
     Route: 041
     Dates: start: 20220303, end: 20220315
  2. ATEZOLIZUMAB [Suspect]
     Active Substance: ATEZOLIZUMAB
     Indication: Bile duct cancer
  3. COBIMETINIB [Suspect]
     Active Substance: COBIMETINIB
     Indication: Gallbladder cancer metastatic
     Dosage: LAST ADMINISTERED DATE OF COBIMETINIB: 15/MAR/2022 (1260 MG) AND 24-MAR-2022
     Route: 048
     Dates: start: 20220303, end: 20220315
  4. COBIMETINIB [Suspect]
     Active Substance: COBIMETINIB
     Indication: Bile duct cancer
  5. COBIMETINIB [Suspect]
     Active Substance: COBIMETINIB
     Indication: Gallbladder cancer metastatic
     Dosage: LAST ADMINISTERED DATE FOR VARLILUMAB: 15/MAR/2022 (432 MG) AND 07/APR/2022
     Route: 048
     Dates: start: 20220303, end: 20220315
  6. COBIMETINIB [Suspect]
     Active Substance: COBIMETINIB
     Indication: Bile duct cancer
  7. GEMCITABINE HYDROCHLORIDE [Concomitant]
     Active Substance: GEMCITABINE HYDROCHLORIDE
     Dosage: 7 CYCLES GEM/CIS
     Dates: start: 202009, end: 202104
  8. CISPLATIN [Concomitant]
     Active Substance: CISPLATIN
     Dosage: 7 CYCLES GEM/CIS
     Dates: start: 202009, end: 202104

REACTIONS (2)
  - Upper gastrointestinal haemorrhage [Recovering/Resolving]
  - Anaemia [Recovering/Resolving]

NARRATIVE: CASE EVENT DATE: 20220329
